FAERS Safety Report 25046591 (Version 5)
Quarter: 2025Q3

REPORT INFORMATION
  Report Type: Spontaneous
  Country: US (occurrence: US)
  Receive Date: 20250306
  Receipt Date: 20250803
  Transmission Date: 20251020
  Serious: Yes (Hospitalization, Other)
  Sender: ALEXION PHARMACEUTICALS
  Company Number: US-SA-2025SA063373

PATIENT
  Age: 3 Month
  Sex: Male

DRUGS (2)
  1. BEYFORTUS [Suspect]
     Active Substance: NIRSEVIMAB-ALIP
     Indication: Respiratory syncytial virus immunisation
     Dates: start: 20241024, end: 20241024
  2. BEYFORTUS [Suspect]
     Active Substance: NIRSEVIMAB-ALIP
     Dates: start: 20241024, end: 20241024

REACTIONS (3)
  - Respiratory syncytial virus bronchiolitis [Recovered/Resolved]
  - Respiratory distress [Recovered/Resolved]
  - Incorrect dose administered [Unknown]

NARRATIVE: CASE EVENT DATE: 20241024
